FAERS Safety Report 17945079 (Version 3)
Quarter: 2022Q1

REPORT INFORMATION
  Report Type: Spontaneous
  Country: US (occurrence: US)
  Receive Date: 20200626
  Receipt Date: 20220218
  Transmission Date: 20220423
  Serious: No
  Sender: FDA-Public Use
  Company Number: US-JNJFOC-20200625390

PATIENT
  Age: 63 Year
  Sex: Female

DRUGS (11)
  1. MENS ROGAINE EXTRA STRENGTH [Suspect]
     Active Substance: MINOXIDIL
     Indication: Alopecia
     Dosage: HALF A CAPFUL TWICE A DAY
     Route: 061
     Dates: start: 20200515, end: 20200612
  2. SYNTHROID [Concomitant]
     Active Substance: LEVOTHYROXINE SODIUM
     Indication: Hypothyroidism
     Route: 065
     Dates: start: 20160721
  3. LEFLUNOMIDE [Concomitant]
     Active Substance: LEFLUNOMIDE
     Indication: Rheumatoid arthritis
     Route: 065
  4. VITAMIN D                          /00107901/ [Concomitant]
     Indication: Product used for unknown indication
     Route: 065
  5. VITAMIN C                          /00008001/ [Concomitant]
     Indication: Product used for unknown indication
     Route: 065
  6. CALCIFEROL CO [Concomitant]
     Indication: Product used for unknown indication
     Route: 065
  7. MAGNESIUM                          /00123201/ [Concomitant]
     Indication: Product used for unknown indication
     Route: 065
  8. BOSWELLIA SERRATA;CHONDROITIN [Concomitant]
     Indication: Product used for unknown indication
     Route: 065
  9. FISH OIL                           /00492901/ [Concomitant]
     Indication: Product used for unknown indication
     Route: 065
  10. FLEX-A-MIN                         /01729501/ [Concomitant]
     Indication: Product used for unknown indication
     Route: 065
  11. VITAMIN B COMPLEX                  /00003501/ [Concomitant]
     Indication: Product used for unknown indication
     Route: 065

REACTIONS (3)
  - Alopecia [Recovered/Resolved]
  - Product use issue [Unknown]
  - Off label use [Unknown]

NARRATIVE: CASE EVENT DATE: 20200515
